FAERS Safety Report 9316697 (Version 1)
Quarter: 2013Q2

REPORT INFORMATION
  Report Type: Report from Study
  Country: CA (occurrence: CA)
  Receive Date: 20130530
  Receipt Date: 20130530
  Transmission Date: 20140414
  Serious: Yes (Other)
  Sender: FDA-Public Use
  Company Number: CA-JNJFOC-20130517741

PATIENT
  Sex: Male
  Weight: 105.5 kg

DRUGS (2)
  1. REMICADE [Suspect]
     Indication: CROHN^S DISEASE
     Route: 042
     Dates: start: 20130410
  2. VENTOLIN [Concomitant]
     Route: 065

REACTIONS (4)
  - Musculoskeletal stiffness [Unknown]
  - Arthralgia [Recovering/Resolving]
  - Localised infection [Recovering/Resolving]
  - Laceration [Recovering/Resolving]
